FAERS Safety Report 19108279 (Version 2)
Quarter: 2021Q2

REPORT INFORMATION
  Report Type: Spontaneous
  Country: US (occurrence: US)
  Receive Date: 20210408
  Receipt Date: 20210426
  Transmission Date: 20210717
  Serious: No
  Sender: FDA-Public Use
  Company Number: NVSC2021US078831

PATIENT
  Age: 70 Year
  Sex: Female

DRUGS (1)
  1. VOLTAREN [Suspect]
     Active Substance: DICLOFENAC SODIUM
     Indication: ARTHRITIS
     Dosage: UNK
     Route: 065
     Dates: start: 20210222, end: 20210222

REACTIONS (4)
  - Blister infected [Unknown]
  - Application site bruise [Unknown]
  - Application site vesicles [Unknown]
  - Application site scab [Unknown]

NARRATIVE: CASE EVENT DATE: 20210222
